FAERS Safety Report 5197528-6 (Version None)
Quarter: 2007Q1

REPORT INFORMATION
  Report Type: 
  Country: None (occurrence: None)
  Receive Date: 20070103
  Receipt Date: 20061222
  Transmission Date: 20070707
  Serious: Yes (Hospitalization)
  Sender: FDA-Public Use
  Company Number: JP-PFIZER INC-2006148866

PATIENT
  Sex: Female

DRUGS (5)
  1. PHARMORUBICIN [Suspect]
     Indication: BREAST CANCER
     Dosage: DAILY DOSE:240MG-FREQ:BID
     Route: 042
     Dates: start: 20060913, end: 20061013
  2. ENDOXAN [Suspect]
     Indication: BREAST CANCER
     Dosage: DAILY DOSE:1600MG-FREQ:BID
     Route: 042
     Dates: start: 20060913, end: 20061013
  3. FLUOROURACIL [Concomitant]
     Dates: start: 20031027, end: 20051121
  4. CMF [Concomitant]
     Dates: start: 20030512, end: 20031020
  5. AROMASIN [Concomitant]
     Route: 048
     Dates: start: 20031027, end: 20060911

REACTIONS (1)
  - INTERSTITIAL LUNG DISEASE [None]
